FAERS Safety Report 20578562 (Version 1)
Quarter: 2022Q1

REPORT INFORMATION
  Report Type: Spontaneous
  Country: GB (occurrence: GB)
  Receive Date: 20220310
  Receipt Date: 20220310
  Transmission Date: 20220423
  Serious: Yes (Hospitalization)
  Sender: FDA-Public Use
  Company Number: GB-ABBVIE-22K-167-4310076-00

PATIENT
  Age: 86 Year
  Sex: Male

DRUGS (5)
  1. EPILIM [Suspect]
     Active Substance: VALPROATE SODIUM
     Indication: Seizure
     Dosage: AT NIGHT
     Route: 065
     Dates: start: 201809
  2. EPILIM [Suspect]
     Active Substance: VALPROATE SODIUM
     Route: 065
     Dates: start: 201901
  3. EPILIM [Suspect]
     Active Substance: VALPROATE SODIUM
     Dosage: (300 MG IN THE MORNING AND 500 MG IN THE NIGHT)
     Route: 065
     Dates: start: 201909
  4. EPILIM [Suspect]
     Active Substance: VALPROATE SODIUM
     Route: 065
     Dates: start: 201912
  5. RIVAROXABAN [Concomitant]
     Active Substance: RIVAROXABAN
     Indication: Product used for unknown indication

REACTIONS (8)
  - Pleural effusion [Unknown]
  - Dyspnoea [Unknown]
  - Nightmare [Unknown]
  - Myalgia [Unknown]
  - Malaise [Unknown]
  - Blood sodium decreased [Unknown]
  - Medication error [Unknown]
  - Off label use [Unknown]
